FAERS Safety Report 4626022-3 (Version None)
Quarter: 2005Q2

REPORT INFORMATION
  Report Type: 
  Country: None (occurrence: None)
  Receive Date: 20050404
  Receipt Date: 20050329
  Transmission Date: 20051028
  Serious: Yes (Hospitalization)
  Sender: FDA-Public Use
  Company Number: US-JNJFOC-20050305002

PATIENT
  Sex: Female

DRUGS (10)
  1. DURAGESIC-100 [Suspect]
     Route: 062
     Dates: start: 20050101
  2. DURAGESIC-100 [Suspect]
     Route: 062
     Dates: start: 20050101
  3. DURAGESIC-100 [Suspect]
     Route: 062
     Dates: start: 20050101
  4. DURAGESIC-100 [Suspect]
     Route: 062
     Dates: start: 20050101
  5. DURAGESIC-100 [Suspect]
     Route: 062
     Dates: start: 20050101
  6. NORCO [Concomitant]
     Route: 049
  7. NORCO [Concomitant]
     Indication: PAIN
     Dosage: 10 MG HYDROCODONE PLUS 325 MG ACETAMINOPHEN, 2 IN 24 HOURS
     Route: 049
  8. VALIUM [Concomitant]
     Indication: ANXIETY
     Route: 049
  9. TOPROL-XL [Concomitant]
     Route: 049
  10. PREDNISONE [Concomitant]
     Indication: DRUG USE FOR UNKNOWN INDICATION
     Route: 049

REACTIONS (13)
  - ASEPTIC NECROSIS BONE [None]
  - ASTHENIA [None]
  - DIARRHOEA [None]
  - DIZZINESS [None]
  - FEELING HOT [None]
  - FEELING JITTERY [None]
  - HEADACHE [None]
  - MEDICATION ERROR [None]
  - MUSCLE TWITCHING [None]
  - NAUSEA [None]
  - PHARMACEUTICAL PRODUCT COMPLAINT [None]
  - RETCHING [None]
  - THERAPEUTIC RESPONSE DECREASED [None]
